FAERS Safety Report 4494982-X (Version None)
Quarter: 2004Q4

REPORT INFORMATION
  Report Type: 
  Country: None (occurrence: None)
  Receive Date: 20041103
  Receipt Date: 20041018
  Transmission Date: 20050328
  Serious: Yes (Hospitalization)
  Sender: FDA-Public Use
  Company Number: 203165

PATIENT
  Age: 66 Year
  Sex: Female
  Weight: 43.0917 kg

DRUGS (13)
  1. AVONEX [Suspect]
     Indication: MULTIPLE SCLEROSIS
     Dosage: 30 MCG QW IM
     Route: 030
     Dates: start: 19990201, end: 20040101
  2. AVONEX [Suspect]
     Indication: MULTIPLE SCLEROSIS
     Dosage: 30 MCG QW IM
     Route: 030
     Dates: start: 20040101
  3. NEURONTIN [Concomitant]
  4. METHOTREXATE [Concomitant]
  5. FOLIC ACID [Concomitant]
  6. CELEBREX [Concomitant]
  7. FEMHRT [Concomitant]
  8. LEXAPRO [Concomitant]
  9. LIPITOR [Concomitant]
  10. AMINOPYRIDINE [Concomitant]
  11. POTASSIUM [Concomitant]
  12. CALCIUM CITRATE [Concomitant]
  13. FOSAMAX [Concomitant]

REACTIONS (63)
  - AFFECTIVE DISORDER [None]
  - ALANINE AMINOTRANSFERASE INCREASED [None]
  - AMNESIA [None]
  - ANOREXIA [None]
  - APHASIA [None]
  - ASPARTATE AMINOTRANSFERASE INCREASED [None]
  - ASTHENIA [None]
  - ATELECTASIS [None]
  - ATROPHIC VULVOVAGINITIS [None]
  - BASOPHIL PERCENTAGE DECREASED [None]
  - BLADDER SQUAMOUS CELL CARCINOMA STAGE UNSPECIFIED [None]
  - BLOOD ALBUMIN DECREASED [None]
  - BLOOD BICARBONATE DECREASED [None]
  - BLOOD CALCIUM INCREASED [None]
  - BLOOD CHLORIDE DECREASED [None]
  - BLOOD GLUCOSE INCREASED [None]
  - BLOOD MAGNESIUM DECREASED [None]
  - BLOOD PH INCREASED [None]
  - BLOOD PHOSPHORUS INCREASED [None]
  - BLOOD POTASSIUM INCREASED [None]
  - BLOOD SODIUM DECREASED [None]
  - BLOOD TRIGLYCERIDES INCREASED [None]
  - CEREBRAL ATROPHY [None]
  - CHEST PAIN [None]
  - CLOSTRIDIAL INFECTION [None]
  - COGNITIVE DISORDER [None]
  - CONFUSIONAL STATE [None]
  - CONVULSION [None]
  - CREATINE URINE DECREASED [None]
  - DEHYDRATION [None]
  - DIARRHOEA [None]
  - DRUG HYPERSENSITIVITY [None]
  - DYSPNOEA [None]
  - ENCEPHALOPATHY [None]
  - FAECAL INCONTINENCE [None]
  - FAILURE TO THRIVE [None]
  - GENITAL PRURITUS FEMALE [None]
  - HAEMOGLOBIN DECREASED [None]
  - HEADACHE [None]
  - HYPERCHOLESTEROLAEMIA [None]
  - INFLUENZA LIKE ILLNESS [None]
  - ISCHAEMIA [None]
  - LOW DENSITY LIPOPROTEIN INCREASED [None]
  - LUNG INFILTRATION [None]
  - LYMPHOCYTE PERCENTAGE DECREASED [None]
  - MARKEDLY REDUCED DIETARY INTAKE [None]
  - MICROANGIOPATHY [None]
  - ORAL CANDIDIASIS [None]
  - PCO2 DECREASED [None]
  - PLATELET COUNT INCREASED [None]
  - PO2 INCREASED [None]
  - POST PROCEDURAL NAUSEA [None]
  - POST PROCEDURAL VOMITING [None]
  - POSTOPERATIVE ILEUS [None]
  - PRURITUS [None]
  - PYREXIA [None]
  - RED BLOOD CELL COUNT DECREASED [None]
  - RED CELL DISTRIBUTION WIDTH INCREASED [None]
  - SINUS TACHYCARDIA [None]
  - TRANSIENT ISCHAEMIC ATTACK [None]
  - URINARY TRACT INFECTION ENTEROCOCCAL [None]
  - URINARY TRACT INFECTION FUNGAL [None]
  - WEIGHT DECREASED [None]
